FAERS Safety Report 8060441-0 (Version None)
Quarter: 2012Q1

REPORT INFORMATION
  Report Type: 
  Country: None (occurrence: None)
  Receive Date: 20120120
  Receipt Date: 20120112
  Transmission Date: 20120608
  Serious: Yes (Hospitalization)
  Sender: FDA-Public Use
  Company Number: JP-GLAXOSMITHKLINE-B0770234A

PATIENT
  Sex: Female
  Weight: 48 kg

DRUGS (6)
  1. LOBU [Suspect]
     Indication: BACK PAIN
     Route: 048
     Dates: start: 20110817, end: 20110920
  2. XELODA [Suspect]
     Indication: PRODUCT USED FOR UNKNOWN INDICATION
     Dosage: 2400MGM2 PER DAY
     Route: 048
     Dates: start: 20110222, end: 20110717
  3. DECADRON [Suspect]
     Indication: CEREBRAL OEDEMA MANAGEMENT
     Route: 048
     Dates: start: 20110602, end: 20110920
  4. TYKERB [Suspect]
     Indication: BREAST CANCER
     Dosage: 1250MG PER DAY
     Route: 048
     Dates: start: 20110222, end: 20110920
  5. XELODA [Suspect]
     Dosage: 1800MG PER DAY
     Route: 048
     Dates: start: 20110801, end: 20110920
  6. ACTONEL [Concomitant]
     Indication: OSTEOPOROSIS
     Route: 048
     Dates: start: 20110817, end: 20110920

REACTIONS (3)
  - LUMBAR VERTEBRAL FRACTURE [None]
  - DISSEMINATED INTRAVASCULAR COAGULATION [None]
  - DUODENAL PERFORATION [None]
